FAERS Safety Report 18929389 (Version 1)
Quarter: 2021Q1

REPORT INFORMATION
  Report Type: Spontaneous
  Country: US (occurrence: US)
  Receive Date: 20210223
  Receipt Date: 20210223
  Transmission Date: 20210420
  Serious: No
  Sender: FDA-Public Use
  Company Number: US-ROCHE-2649948

PATIENT
  Age: 17 Year
  Sex: Male

DRUGS (2)
  1. NUTROPIN [Suspect]
     Active Substance: SOMATROPIN
  2. NUTROPIN [Suspect]
     Active Substance: SOMATROPIN
     Indication: PRODUCT USED FOR UNKNOWN INDICATION
     Dosage: DAILY ;  THERAPY STATUS: 2019? PRESENT
     Route: 058
     Dates: start: 20190101

REACTIONS (2)
  - Fatigue [Unknown]
  - Dandruff [Unknown]

NARRATIVE: CASE EVENT DATE: 20200701
